FAERS Safety Report 19452120 (Version 1)
Quarter: 2021Q2

REPORT INFORMATION
  Report Type: Spontaneous
  Country: US (occurrence: US)
  Receive Date: 20210623
  Receipt Date: 20210623
  Transmission Date: 20210717
  Serious: No
  Sender: FDA-Public Use
  Company Number: US-GLENMARK PHARMACEUTICALS-2021GMK053655

PATIENT

DRUGS (1)
  1. ESTRADIOL VAGINAL INSERTS USP [Suspect]
     Active Substance: ESTRADIOL
     Indication: PRODUCT USED FOR UNKNOWN INDICATION
     Dosage: 10 MICROGRAM, HS(1X/DAY FOR 2 WEEKS, THEN TWICE WEEKLY FOR 6 WEEKS)
     Route: 067
     Dates: start: 20210410

REACTIONS (3)
  - Product solubility abnormal [Unknown]
  - Drug delivery system issue [Unknown]
  - Incorrect dose administered [Unknown]
